FAERS Safety Report 4829553-6 (Version None)
Quarter: 2005Q4

REPORT INFORMATION
  Report Type: 
  Country: None (occurrence: None)
  Receive Date: 20051116
  Receipt Date: 20051001
  Transmission Date: 20060501
  Serious: Yes (Hospitalization)
  Sender: FDA-Public Use
  Company Number: JP-ROCHE-420727

PATIENT
  Age: 5 Year
  Sex: Male

DRUGS (2)
  1. ROCEPHIN [Suspect]
     Indication: MENINGITIS
     Route: 041
     Dates: start: 20050923, end: 20051002
  2. VICCILLIN [Concomitant]
     Dosage: DOSE FORM REPORTED AS INJECTABLE.
     Route: 041
     Dates: start: 20050923, end: 20051001

REACTIONS (2)
  - PRURITUS [None]
  - URTICARIA [None]
